FAERS Safety Report 23985957 (Version 1)
Quarter: 2024Q2

REPORT INFORMATION
  Report Type: Spontaneous
  Country: EU (occurrence: EU)
  Receive Date: 20240618
  Receipt Date: 20240618
  Transmission Date: 20240716
  Serious: Yes (Hospitalization)
  Sender: FDA-Public Use
  Company Number: None

PATIENT

DRUGS (6)
  1. BUPRENORPHINE HYDROCHLORIDE [Suspect]
     Active Substance: BUPRENORPHINE HYDROCHLORIDE
  2. ALCOHOL [Suspect]
     Active Substance: ALCOHOL
     Route: 048
  3. COCAINE [Suspect]
     Active Substance: COCAINE
  4. CANNABIS SATIVA SUBSP. INDICA TOP [Suspect]
     Active Substance: CANNABIS SATIVA SUBSP. INDICA TOP
  5. HEROIN [Suspect]
     Active Substance: DIAMORPHINE
  6. NICOTINE\TOBACCO LEAF [Suspect]
     Active Substance: NICOTINE\TOBACCO LEAF
     Dosage: 20 CIGARETTES PAR JOUR
     Route: 055
     Dates: start: 1994

REACTIONS (4)
  - Hallucination, auditory [Recovering/Resolving]
  - Psychiatric decompensation [Recovering/Resolving]
  - Drug abuse [Not Recovered/Not Resolved]
  - Chest pain [Recovering/Resolving]

NARRATIVE: CASE EVENT DATE: 20230901
